FAERS Safety Report 9671648 (Version 2)
Quarter: 2013Q4

REPORT INFORMATION
  Report Type: Spontaneous
  Country: US (occurrence: US)
  Receive Date: 20131106
  Receipt Date: 20131209
  Transmission Date: 20140711
  Serious: Yes (Other)
  Sender: FDA-Public Use
  Company Number: US-PFIZER INC-2013314488

PATIENT
  Age: 53 Year
  Sex: Male
  Weight: 104.31 kg

DRUGS (7)
  1. LYRICA [Suspect]
     Indication: FIBROMYALGIA
     Dosage: UNK
     Route: 048
  2. LYRICA [Suspect]
     Indication: DIABETIC NEUROPATHY
     Dosage: 225 MG, 3X/DAY
     Route: 048
     Dates: start: 20130321
  3. LYRICA [Suspect]
     Indication: SPINAL COLUMN STENOSIS
  4. LYRICA [Suspect]
     Indication: PAIN
  5. OXYCODONE [Concomitant]
     Indication: PAIN
     Dosage: UNK
  6. ALPRAZOLAM [Concomitant]
     Indication: SEDATION
     Dosage: UNK
  7. DIAZEPAM [Concomitant]
     Indication: SEDATION
     Dosage: UNK

REACTIONS (2)
  - Off label use [Unknown]
  - Back disorder [Unknown]
